FAERS Safety Report 6757096-1 (Version None)
Quarter: 2010Q2

REPORT INFORMATION
  Report Type: 
  Country: None (occurrence: None)
  Receive Date: 20100604
  Receipt Date: 20100601
  Transmission Date: 20101027
  Serious: Yes (Hospitalization)
  Sender: FDA-Public Use
  Company Number: AU-MERCK-1006USA00077

PATIENT
  Age: 75 Year
  Sex: Female

DRUGS (7)
  1. FOSAMAX [Suspect]
     Indication: OSTEOPOROSIS
     Route: 048
     Dates: start: 20000516
  2. CITRACAL [Concomitant]
     Route: 048
  3. SERETIDE ACCUHALER [Concomitant]
     Route: 055
  4. TOFRANIL [Concomitant]
     Route: 048
  5. KARVEA [Concomitant]
     Route: 048
  6. ACIMAX [Concomitant]
     Route: 048
  7. SPIRIVA [Concomitant]
     Route: 055

REACTIONS (2)
  - FALL [None]
  - FEMUR FRACTURE [None]
